FAERS Safety Report 5346137-4 (Version None)
Quarter: 2007Q2

REPORT INFORMATION
  Report Type: 
  Country: None (occurrence: None)
  Receive Date: 20070605
  Receipt Date: 20070524
  Transmission Date: 20071010
  Serious: Yes (Death)
  Sender: FDA-Public Use
  Company Number: US-ASTRAZENECA-2006UW19003

PATIENT
  Sex: Male

DRUGS (13)
  1. SEROQUEL [Suspect]
     Route: 048
     Dates: start: 19981112, end: 20000520
  2. SEROQUEL [Suspect]
     Route: 048
     Dates: start: 20000520, end: 20010117
  3. SEROQUEL [Suspect]
     Route: 048
     Dates: start: 20021211
  4. RISPERDAL [Suspect]
  5. TEGRETOL [Concomitant]
  6. LUVOX [Concomitant]
  7. TRILEPTAL [Concomitant]
  8. TENEX [Concomitant]
  9. RITALIN [Concomitant]
  10. MINOCYCLINE HCL [Concomitant]
  11. DEPAKOTE [Concomitant]
     Dosage: 250 MG AM, 325 MG HS
     Dates: start: 19980420
  12. CATAPRES [Concomitant]
  13. ZOLOFT [Concomitant]

REACTIONS (1)
  - PANCREATITIS ACUTE [None]
